FAERS Safety Report 4379886-5 (Version None)
Quarter: 2004Q2

REPORT INFORMATION
  Report Type: 
  Country: None (occurrence: None)
  Receive Date: 20040614
  Receipt Date: 20040604
  Transmission Date: 20050107
  Serious: Yes (Other)
  Sender: FDA-Public Use
  Company Number: JP-JNJFOC-20040405176

PATIENT
  Age: 60 Year
  Sex: Female

DRUGS (1)
  1. LEVOFLOXACIN [Suspect]
     Indication: RESPIRATORY TRACT INFECTION
     Dosage: ORAL
     Dates: start: 20010425

REACTIONS (41)
  - ANGIOPATHY [None]
  - ARTHRALGIA [None]
  - ARTICULAR CALCIFICATION [None]
  - ASTHENIA [None]
  - BLEPHARITIS [None]
  - BLOOD PRESSURE INCREASED [None]
  - CARDIAC VALVE DISEASE [None]
  - DERMATITIS EXFOLIATIVE [None]
  - DIZZINESS [None]
  - DRUG HYPERSENSITIVITY [None]
  - DYSPEPSIA [None]
  - ERYTHEMA [None]
  - GAIT DISTURBANCE [None]
  - HEART RATE INCREASED [None]
  - HOARSENESS [None]
  - HYPOTONIA [None]
  - INDURATION [None]
  - JOINT EFFUSION [None]
  - JOINT SPRAIN [None]
  - JOINT SWELLING [None]
  - LARYNGEAL OEDEMA [None]
  - LOCALISED OSTEOARTHRITIS [None]
  - LYMPHATIC DISORDER [None]
  - MENISCUS LESION [None]
  - MYALGIA [None]
  - OEDEMA MOUTH [None]
  - OEDEMA PERIPHERAL [None]
  - ORAL MUCOSAL BLISTERING [None]
  - PHARYNGOLARYNGEAL PAIN [None]
  - PHLEBITIS [None]
  - PHOTOSENSITIVITY REACTION [None]
  - SHOCK [None]
  - SKIN DISCOLOURATION [None]
  - SOMNOLENCE [None]
  - SWELLING FACE [None]
  - TACHYCARDIA [None]
  - TENDONITIS [None]
  - TINNITUS [None]
  - VISUAL DISTURBANCE [None]
  - VOCAL CORD PARALYSIS [None]
  - WHITE BLOOD CELL COUNT DECREASED [None]
